FAERS Safety Report 6942267-1 (Version None)
Quarter: 2010Q3

REPORT INFORMATION
  Report Type: 
  Country: None (occurrence: None)
  Receive Date: 20100826
  Receipt Date: 20100823
  Transmission Date: 20110219
  Serious: Yes (Death)
  Sender: FDA-Public Use
  Company Number: JP-BAYER-201010080BYL

PATIENT
  Age: 80 Year
  Sex: Male
  Weight: 45 kg

DRUGS (20)
  1. NEXAVAR [Suspect]
     Indication: HEPATIC NEOPLASM MALIGNANT
     Dosage: UNIT DOSE: 200 MG
     Route: 048
     Dates: start: 20091127, end: 20100523
  2. RIVOTRIL [Concomitant]
     Dosage: UNIT DOSE: 0.5 MG
     Route: 048
     Dates: start: 20091208
  3. MEXITIL [Concomitant]
     Dosage: UNIT DOSE: 100 MG
     Route: 048
     Dates: start: 20091208
  4. GABAPEN [Concomitant]
     Dosage: UNIT DOSE: 400 MG
     Route: 048
     Dates: start: 20091208
  5. PETROLATUM SALICYLATE [Concomitant]
     Route: 061
     Dates: start: 20091204
  6. UREPEARL [Concomitant]
     Route: 061
     Dates: start: 20091204
  7. RINDERON-VG [Concomitant]
     Route: 061
     Dates: start: 20091204
  8. DERMOVATE [Concomitant]
     Route: 061
     Dates: start: 20091215
  9. PURSENNID [Concomitant]
     Dosage: UNIT DOSE: 12 MG
     Route: 048
     Dates: start: 20100108
  10. ROHYPNOL [Concomitant]
     Dosage: UNIT DOSE: 1 MG
     Route: 048
  11. ESBERIVEN [Concomitant]
     Route: 048
  12. LOXONIN [Concomitant]
     Dosage: UNIT DOSE: 60 MG
     Route: 048
  13. MUCOSTA [Concomitant]
     Dosage: UNIT DOSE: 100 MG
     Route: 048
  14. METHYCOBAL [Concomitant]
     Dosage: UNIT DOSE: 500 ?G
     Route: 048
  15. MAGNESIUM OXIDE [Concomitant]
     Dosage: UNIT DOSE: 330 MG
     Route: 048
  16. BIO-THREE [Concomitant]
     Route: 048
  17. OPALMON [Concomitant]
     Dosage: UNIT DOSE: 5 ?G
     Route: 048
  18. PROMAC [Concomitant]
     Dosage: UNIT DOSE: 75 MG
     Route: 048
  19. MIYA BM [Concomitant]
     Dosage: UNIT DOSE: 1 G
     Route: 048
  20. TAMSULOSIN HCL [Concomitant]
     Dosage: UNIT DOSE: 0.2 MG
     Route: 048

REACTIONS (2)
  - DIARRHOEA [None]
  - HEPATIC NEOPLASM MALIGNANT [None]
